FAERS Safety Report 9344038 (Version 1)
Quarter: 2013Q2

REPORT INFORMATION
  Report Type: Spontaneous
  Country: GB (occurrence: None)
  Receive Date: 20130610
  Receipt Date: 20130610
  Transmission Date: 20140414
  Serious: Yes (Disabling)
  Sender: FDA-Public Use
  Company Number: GB-DEXPHARM-20130298

PATIENT
  Age: 56 Year
  Sex: Female

DRUGS (2)
  1. OMEPRAZOLE [Suspect]
  2. VITAMIN D [Concomitant]

REACTIONS (6)
  - Arthralgia [None]
  - Muscular weakness [None]
  - Malaise [None]
  - Dyspnoea [None]
  - Drug interaction [None]
  - Arthralgia [None]
